FAERS Safety Report 17531995 (Version 4)
Quarter: 2021Q1

REPORT INFORMATION
  Report Type: Spontaneous
  Country: US (occurrence: US)
  Receive Date: 20200311
  Receipt Date: 20210325
  Transmission Date: 20210419
  Serious: Yes (Hospitalization, Other)
  Sender: FDA-Public Use
  Company Number: US-VIFOR (INTERNATIONAL) INC.-VIT-2020-04281

PATIENT
  Age: 70 Year
  Sex: Female

DRUGS (11)
  1. VELTASSA [Suspect]
     Active Substance: PATIROMER
     Route: 048
     Dates: start: 202002
  2. TACROLIMUS. [Concomitant]
     Active Substance: TACROLIMUS
     Indication: LIVER TRANSPLANT REJECTION
  3. VITAMIN D3 [Concomitant]
     Active Substance: CHOLECALCIFEROL
  4. VELTASSA [Suspect]
     Active Substance: PATIROMER
     Indication: HYPERKALAEMIA
     Route: 048
  5. PROPRANOLOL [Concomitant]
     Active Substance: PROPRANOLOL HYDROCHLORIDE
  6. BABY ASPIRIN [Concomitant]
     Active Substance: ASPIRIN
  7. OXYBUTYNIN. [Concomitant]
     Active Substance: OXYBUTYNIN CHLORIDE
     Dosage: 1/2 TABLET
  8. VELTASSA [Suspect]
     Active Substance: PATIROMER
     Route: 048
     Dates: start: 201909
  9. SODIUM BICARBONATE. [Concomitant]
     Active Substance: SODIUM BICARBONATE
  10. TOPIRAMATE. [Concomitant]
     Active Substance: TOPIRAMATE
  11. MAGNESIUM OXIDE. [Concomitant]
     Active Substance: MAGNESIUM OXIDE

REACTIONS (7)
  - Cataract operation [Unknown]
  - Cytomegalovirus infection [Unknown]
  - Asthenia [Unknown]
  - Hepatic cancer [Unknown]
  - Blood potassium increased [Unknown]
  - Lung neoplasm malignant [Unknown]
  - Diarrhoea [Unknown]

NARRATIVE: CASE EVENT DATE: 20200302
